FAERS Safety Report 14629283 (Version 1)
Quarter: 2018Q1

REPORT INFORMATION
  Report Type: Spontaneous
  Country: US (occurrence: US)
  Receive Date: 20180312
  Receipt Date: 20180312
  Transmission Date: 20180509
  Serious: Yes (Hospitalization)
  Sender: FDA-Public Use
  Company Number: None

PATIENT
  Sex: Female

DRUGS (16)
  1. PREDNISONE. [Concomitant]
     Active Substance: PREDNISONE
  2. VITAMIN B12 [Concomitant]
     Active Substance: CYANOCOBALAMIN
  3. ESCITALOPRAM [Concomitant]
     Active Substance: ESCITALOPRAM OXALATE
  4. COENZYME Q10 [Concomitant]
     Active Substance: UBIDECARENONE
  5. NAMENDA XR [Concomitant]
     Active Substance: MEMANTINE HYDROCHLORIDE
  6. MAGNESIUM [Concomitant]
     Active Substance: MAGNESIUM
  7. TYLENOL [Concomitant]
     Active Substance: ACETAMINOPHEN
  8. NORTREL [Concomitant]
     Active Substance: ETHINYL ESTRADIOL\NORETHINDRONE
  9. NUEDEXTA [Suspect]
     Active Substance: DEXTROMETHORPHAN HYDROBROMIDE\QUINIDINE SULFATE
     Indication: CHRONIC MYELOID LEUKAEMIA
     Route: 048
     Dates: start: 20171103
  10. DANAZOL. [Concomitant]
     Active Substance: DANAZOL
  11. FOLIC ACID. [Concomitant]
     Active Substance: FOLIC ACID
  12. DONEPEZIL. [Concomitant]
     Active Substance: DONEPEZIL
  13. RISPERDAL [Concomitant]
     Active Substance: RISPERIDONE
  14. SENNA LAXATIVE [Concomitant]
     Active Substance: SENNOSIDES
  15. PENICILLIN VK [Concomitant]
     Active Substance: PENICILLIN V POTASSIUM
  16. VITAMIN B1 [Concomitant]
     Active Substance: THIAMINE HYDROCHLORIDE

REACTIONS (2)
  - Hospitalisation [None]
  - Drug dose omission [None]
